FAERS Safety Report 24830559 (Version 1)
Quarter: 2025Q1

REPORT INFORMATION
  Report Type: Spontaneous
  Country: DE (occurrence: DE)
  Receive Date: 20250110
  Receipt Date: 20250110
  Transmission Date: 20250408
  Serious: Yes (Other)
  Sender: ALEXION PHARMACEUTICALS
  Company Number: DE-ASTRAZENECA-202501GLO006634DE

PATIENT
  Age: 21 Year

DRUGS (16)
  1. QUETIAPINE FUMARATE [Interacting]
     Active Substance: QUETIAPINE FUMARATE
     Dosage: 50 MILLIGRAM, QD
  2. QUETIAPINE FUMARATE [Interacting]
     Active Substance: QUETIAPINE FUMARATE
     Dosage: 50 MILLIGRAM, QD
     Route: 048
  3. QUETIAPINE FUMARATE [Interacting]
     Active Substance: QUETIAPINE FUMARATE
     Dosage: 50 MILLIGRAM, QD
  4. QUETIAPINE FUMARATE [Interacting]
     Active Substance: QUETIAPINE FUMARATE
     Dosage: 50 MILLIGRAM, QD
     Route: 048
  5. ZUCLOPENTHIXOL [Interacting]
     Active Substance: ZUCLOPENTHIXOL
     Route: 030
  6. ZUCLOPENTHIXOL [Interacting]
     Active Substance: ZUCLOPENTHIXOL
  7. MIRTAZAPINE [Interacting]
     Active Substance: MIRTAZAPINE
     Dosage: 15 MILLIGRAM, QD
     Route: 048
  8. MIRTAZAPINE [Interacting]
     Active Substance: MIRTAZAPINE
     Dosage: 15 MILLIGRAM, QD
  9. OLANZAPINE [Suspect]
     Active Substance: OLANZAPINE
     Route: 065
  10. OLANZAPINE [Suspect]
     Active Substance: OLANZAPINE
     Route: 065
  11. DIAZEPAM [Concomitant]
     Active Substance: DIAZEPAM
     Route: 048
  12. DIAZEPAM [Concomitant]
     Active Substance: DIAZEPAM
  13. LORAZEPAM [Concomitant]
     Active Substance: LORAZEPAM
     Dosage: 4 MILLIGRAM, QD
     Route: 048
  14. LORAZEPAM [Concomitant]
     Active Substance: LORAZEPAM
     Dosage: 4 MILLIGRAM, QD
  15. VALPROATE [Concomitant]
     Active Substance: VALPROIC ACID
     Route: 065
  16. VALPROATE [Concomitant]
     Active Substance: VALPROIC ACID
     Route: 065

REACTIONS (6)
  - Dyskinesia [Recovered/Resolved]
  - Dystonia [Recovered/Resolved]
  - Dyskinesia [Recovered/Resolved]
  - Torticollis [Recovered/Resolved]
  - Dysphagia [Recovered/Resolved]
  - Drug interaction [Unknown]
